FAERS Safety Report 4821980-6 (Version None)
Quarter: 2005Q4

REPORT INFORMATION
  Report Type: 
  Country: None (occurrence: None)
  Receive Date: 20051103
  Receipt Date: 20051024
  Transmission Date: 20060501
  Serious: Yes (Hospitalization)
  Sender: FDA-Public Use
  Company Number: MK200510-0225-1

PATIENT
  Age: 37 Year
  Sex: Male

DRUGS (3)
  1. I131 ORAL SOLUTION THEIR 10MCI [Suspect]
     Indication: BASEDOW'S DISEASE
     Dosage: 10 MCI ONE TIME
  2. PROPRANOLOL [Concomitant]
  3. CARBIMAZOLE [Concomitant]

REACTIONS (4)
  - AREFLEXIA [None]
  - BLOOD POTASSIUM DECREASED [None]
  - HYPOTHYROIDISM [None]
  - PARALYSIS FLACCID [None]
